FAERS Safety Report 5442574-8 (Version None)
Quarter: 2007Q3

REPORT INFORMATION
  Report Type: 
  Country: None (occurrence: None)
  Receive Date: 20070904
  Receipt Date: 20070815
  Transmission Date: 20080115
  Serious: Yes (Death)
  Sender: FDA-Public Use
  Company Number: PHBS2007GR14272

PATIENT
  Age: 74 Year
  Sex: Male

DRUGS (1)
  1. IMATINIB MESYLATE [Suspect]
     Indication: GASTROINTESTINAL STROMAL TUMOUR
     Dosage: 400 MG, QD
     Route: 065

REACTIONS (9)
  - ASTHENIA [None]
  - BENCE JONES PROTEINURIA [None]
  - BLOOD CALCIUM INCREASED [None]
  - BONE PAIN [None]
  - FATIGUE [None]
  - MULTIPLE MYELOMA [None]
  - NORMOCHROMIC NORMOCYTIC ANAEMIA [None]
  - RED BLOOD CELL SEDIMENTATION RATE ABNORMAL [None]
  - X-RAY ABNORMAL [None]
